FAERS Safety Report 14766103 (Version 1)
Quarter: 2018Q2

REPORT INFORMATION
  Report Type: Spontaneous
  Country: US (occurrence: US)
  Receive Date: 20180416
  Receipt Date: 20180416
  Transmission Date: 20180711
  Serious: No
  Sender: FDA-Public Use
  Company Number: US-PARAGONBIOTECK-2017-US-006778

PATIENT
  Sex: 0

DRUGS (1)
  1. PHENYLEPHRINE HYDROCHLORIDE OPHTHALMIC [Suspect]
     Active Substance: PHENYLEPHRINE HYDROCHLORIDE
     Indication: MYDRIASIS
     Dates: start: 20170612, end: 20170612

REACTIONS (1)
  - Accidental exposure to product packaging [Unknown]

NARRATIVE: CASE EVENT DATE: 20170612
